FAERS Safety Report 8360523-X (Version None)
Quarter: 2012Q2

REPORT INFORMATION
  Report Type: 
  Country: None (occurrence: None)
  Receive Date: 20120515
  Receipt Date: 20120502
  Transmission Date: 20120825
  Serious: Yes (Hospitalization)
  Sender: FDA-Public Use
  Company Number: US-ELI_LILLY_AND_COMPANY-US201205001615

PATIENT
  Age: 56 Year
  Sex: Female
  Weight: 117.9 kg

DRUGS (5)
  1. REMODULIN [Concomitant]
     Indication: PULMONARY ARTERIAL HYPERTENSION
     Dosage: 20 DF, OTHER
     Route: 058
     Dates: start: 20120218
  2. ADCIRCA [Suspect]
  3. COUMADIN [Concomitant]
  4. DIURETICS [Concomitant]
  5. TRACLEER [Concomitant]

REACTIONS (2)
  - FLUID RETENTION [None]
  - LOCALISED INFECTION [None]
